FAERS Safety Report 7796321-5 (Version None)
Quarter: 2011Q4

REPORT INFORMATION
  Report Type: 
  Country: None (occurrence: None)
  Receive Date: 20111005
  Receipt Date: 20110927
  Transmission Date: 20120403
  Serious: Yes (Hospitalization, Other)
  Sender: FDA-Public Use
  Company Number: NL-BIOGENIDEC-2011BI028012

PATIENT
  Age: 31 Year
  Sex: Male

DRUGS (8)
  1. VESICARE [Concomitant]
  2. CARBAMAZEPINE [Concomitant]
     Indication: EPILEPSY
     Route: 048
  3. SYMMETREL [Concomitant]
  4. SOLU-MEDROL [Concomitant]
     Indication: MULTIPLE SCLEROSIS RELAPSE
  5. PANTOPRAZOLE [Concomitant]
     Indication: OESOPHAGITIS
  6. FERROGRADUMET [Concomitant]
  7. FURADANTIN [Concomitant]
  8. TYSABRI [Suspect]
     Indication: RELAPSING-REMITTING MULTIPLE SCLEROSIS
     Route: 042
     Dates: start: 20080122

REACTIONS (1)
  - CONVULSION [None]
